FAERS Safety Report 9651869 (Version 1)
Quarter: 2013Q4

REPORT INFORMATION
  Report Type: Report from Study
  Country: CA (occurrence: CA)
  Receive Date: 20131029
  Receipt Date: 20131029
  Transmission Date: 20140711
  Serious: Yes (Other)
  Sender: FDA-Public Use
  Company Number: CA-JNJFOC-20131013691

PATIENT
  Sex: Male
  Weight: 93.2 kg

DRUGS (3)
  1. REMICADE [Suspect]
     Indication: COLITIS ULCERATIVE
     Route: 042
     Dates: start: 20130219
  2. ASACOL [Concomitant]
     Route: 065
  3. IMURAN [Concomitant]
     Route: 065

REACTIONS (1)
  - Carpal tunnel syndrome [Unknown]
